FAERS Safety Report 7338791-2 (Version None)
Quarter: 2011Q1

REPORT INFORMATION
  Report Type: 
  Country: None (occurrence: None)
  Receive Date: 20110210
  Receipt Date: 20101213
  Transmission Date: 20110831
  Serious: No
  Sender: FDA-Public Use
  Company Number: 1000017781

PATIENT
  Age: 56 Year
  Sex: Female

DRUGS (11)
  1. SAVELLA [Suspect]
     Indication: FIBROMYALGIA
     Dosage: 12.5 MG (12.5 MG, 1 IN 1 D), ORAL, 25 MG (12.5 MG, 2 IN 1 D), ORAL, 50 MG (25 MG, 2 IN 1 D), ORAL
     Route: 048
     Dates: start: 20101126, end: 20101129
  2. SAVELLA [Suspect]
     Indication: FIBROMYALGIA
     Dosage: 12.5 MG (12.5 MG, 1 IN 1 D), ORAL, 25 MG (12.5 MG, 2 IN 1 D), ORAL, 50 MG (25 MG, 2 IN 1 D), ORAL
     Route: 048
     Dates: start: 20101124, end: 20101125
  3. SAVELLA [Suspect]
     Indication: FIBROMYALGIA
     Dosage: 12.5 MG (12.5 MG, 1 IN 1 D), ORAL, 25 MG (12.5 MG, 2 IN 1 D), ORAL, 50 MG (25 MG, 2 IN 1 D), ORAL
     Route: 048
     Dates: start: 20101123, end: 20101123
  4. GABAPENTIN (GABAPENTIN) (GABAPENTIN) [Concomitant]
  5. TRAZODONE (TRAZODONE) (TRAZODONE) [Concomitant]
  6. MELATONIN (MELATONIN) (MELATONIN) [Concomitant]
  7. SAVELLA [Suspect]
     Indication: FIBROMYALGIA
     Dosage: 100 MG (12.5 MG, 2 IN 1 D), ORAL
     Route: 048
     Dates: start: 20101130, end: 20101201
  8. VITAMIN D (VITAMIN D) (VITAMIN D) [Concomitant]
  9. WELLBUTRIN (BUPROPION) (BUPROPION) [Concomitant]
  10. ASPIRIN [Concomitant]
  11. CALCIUM/VITAMIN D (CALCIUM/VIITAMIN D) (CALCIUM/VITAMIN D) [Concomitant]

REACTIONS (1)
  - HYPERGLYCAEMIA [None]
